FAERS Safety Report 6631181-7 (Version None)
Quarter: 2010Q1

REPORT INFORMATION
  Report Type: 
  Country: None (occurrence: None)
  Receive Date: 20100309
  Receipt Date: 20100223
  Transmission Date: 20100710
  Serious: Yes (Hospitalization)
  Sender: FDA-Public Use
  Company Number: 1000012306

PATIENT
  Age: 63 Year
  Sex: Male

DRUGS (10)
  1. ESCITALOPRAM [Suspect]
  2. PLAVIX [Suspect]
  3. KARDEGIC [Suspect]
  4. NICOBION [Concomitant]
  5. GLUCOPHAGE [Concomitant]
  6. MICARDIS [Concomitant]
  7. SPECIAFOLDINE [Concomitant]
  8. DILTIAZEM [Concomitant]
  9. IMOVANE [Concomitant]
  10. NEXIUM [Concomitant]

REACTIONS (6)
  - ASTHENIA [None]
  - DIZZINESS [None]
  - GASTRITIS [None]
  - HAEMOGLOBIN DECREASED [None]
  - RECTAL HAEMORRHAGE [None]
  - ULCER [None]
